FAERS Safety Report 25374411 (Version 2)
Quarter: 2025Q3

REPORT INFORMATION
  Report Type: Spontaneous
  Country: US (occurrence: US)
  Receive Date: 20250529
  Receipt Date: 20250724
  Transmission Date: 20251021
  Serious: No
  Sender: KALEO
  Company Number: US-KALEO, INC.-2025KL000007

PATIENT

DRUGS (2)
  1. AUVI-Q [Suspect]
     Active Substance: EPINEPHRINE
     Indication: Anaphylactic reaction
  2. AUVI-Q [Suspect]
     Active Substance: EPINEPHRINE

REACTIONS (2)
  - No device malfunction [Not Recovered/Not Resolved]
  - No device malfunction [Not Recovered/Not Resolved]

NARRATIVE: CASE EVENT DATE: 20250412
